FAERS Safety Report 5129963-6 (Version None)
Quarter: 2006Q4

REPORT INFORMATION
  Report Type: 
  Country: None (occurrence: None)
  Receive Date: 20061013
  Receipt Date: 20061010
  Transmission Date: 20070319
  Serious: Yes (Other)
  Sender: FDA-Public Use
  Company Number: 148522USA

PATIENT
  Sex: Female

DRUGS (3)
  1. PIMOZIDE [Suspect]
     Indication: DYSTONIA
     Dosage: 4 MG (1 IN 1 D) ORAL
     Route: 048
  2. TETRABENAZINE [Suspect]
     Indication: DYSTONIA
     Dosage: 75 MG (25 MG, 3 IN 1 D) ORAL
     Route: 048
  3. TRIHEXYPHENIDYL HCL [Concomitant]

REACTIONS (6)
  - DEPRESSED LEVEL OF CONSCIOUSNESS [None]
  - MEMORY IMPAIRMENT [None]
  - PERSONALITY CHANGE [None]
  - RESTLESSNESS [None]
  - SOMNOLENCE [None]
  - WEIGHT INCREASED [None]
